FAERS Safety Report 10621496 (Version 1)
Quarter: 2014Q4

REPORT INFORMATION
  Report Type: Spontaneous
  Country: US (occurrence: None)
  Receive Date: 20141126
  Receipt Date: 20141126
  Transmission Date: 20150529
  Serious: No
  Sender: FDA-Public Use
  Company Number: None

PATIENT
  Age: 62 Year
  Sex: Female
  Weight: 64.86 kg

DRUGS (1)
  1. METOPROLOL TARTRATE. [Suspect]
     Active Substance: METOPROLOL TARTRATE
     Indication: HYPERTENSION
     Dosage: 60 PILLS TWICE DAILY TAKEN BY MOUTH
     Route: 048
     Dates: start: 20141110, end: 20141123

REACTIONS (6)
  - Product contamination microbial [None]
  - Product substitution issue [None]
  - Product odour abnormal [None]
  - Product taste abnormal [None]
  - Product quality issue [None]
  - Abdominal discomfort [None]

NARRATIVE: CASE EVENT DATE: 20141102
